FAERS Safety Report 10581519 (Version 2)
Quarter: 2015Q3

REPORT INFORMATION
  Report Type: Report from Study
  Country: JP (occurrence: JP)
  Receive Date: 20141113
  Receipt Date: 20150818
  Transmission Date: 20151125
  Serious: Yes (Other)
  Sender: FDA-Public Use
  Company Number: PHHY2014JP144314

PATIENT
  Age: 64 Year
  Sex: Female
  Weight: 73 kg

DRUGS (47)
  1. BASEN//VOGLIBOSE [Suspect]
     Active Substance: VOGLIBOSE
     Indication: TYPE 2 DIABETES MELLITUS
     Dosage: 0.6 MG, QD
     Route: 048
     Dates: start: 20131115, end: 20131118
  2. LOXONIN [Concomitant]
     Active Substance: LOXOPROFEN SODIUM
     Dosage: 180 MG, UNK
     Route: 048
     Dates: start: 20140808, end: 20140817
  3. MUCOSTA [Concomitant]
     Active Substance: REBAMIPIDE
     Dosage: 300 MG, UNK
     Route: 048
     Dates: start: 20140808, end: 20140817
  4. FLOMOX//CEFCAPENE PIVOXIL HYDROCHLORIDE [Concomitant]
     Active Substance: CEFCAPENE PIVOXIL HYDROCHLORIDE HYDRATE
     Indication: TYPE 2 DIABETES MELLITUS
     Dosage: 200 MG, UNK
     Route: 048
     Dates: start: 20140307, end: 20140320
  5. FLOMOX//CEFCAPENE PIVOXIL HYDROCHLORIDE [Concomitant]
     Active Substance: CEFCAPENE PIVOXIL HYDROCHLORIDE HYDRATE
     Dosage: 200 MG, UNK
     Route: 048
     Dates: start: 20140509, end: 20140518
  6. FLOMOX//CEFCAPENE PIVOXIL HYDROCHLORIDE [Concomitant]
     Active Substance: CEFCAPENE PIVOXIL HYDROCHLORIDE HYDRATE
     Dosage: 200 MG, UNK
     Route: 048
     Dates: start: 20140808, end: 20140817
  7. MEDICON (DEXTROMETHORPHAN HYDROBROMIDE) [Concomitant]
     Active Substance: DEXTROMETHORPHAN HYDROBROMIDE
     Dosage: 45 MG, UNK
     Route: 048
     Dates: start: 20141017, end: 20141026
  8. LASIX [Concomitant]
     Active Substance: FUROSEMIDE
     Indication: RENAL IMPAIRMENT
     Dosage: UNK
     Route: 065
     Dates: end: 20131112
  9. HUMULIN N [Concomitant]
     Active Substance: INSULIN HUMAN
     Indication: TYPE 2 DIABETES MELLITUS
     Dosage: 4 IU, UNK
     Route: 065
     Dates: start: 20131209, end: 20140114
  10. HUMULIN R [Concomitant]
     Active Substance: INSULIN HUMAN
     Indication: TYPE 2 DIABETES MELLITUS
     Dosage: 22 IU, UNK
     Route: 065
     Dates: start: 20131104, end: 20131124
  11. LOXONIN [Concomitant]
     Active Substance: LOXOPROFEN SODIUM
     Dosage: 180 MG, UNK
     Route: 048
     Dates: start: 20140509, end: 20140518
  12. MUCOSTA [Concomitant]
     Active Substance: REBAMIPIDE
     Dosage: 300 MG, UNK
     Route: 048
     Dates: start: 20140711, end: 20140720
  13. MUCOSTA [Concomitant]
     Active Substance: REBAMIPIDE
     Dosage: 300 MG, UNK
     Route: 048
     Dates: start: 20140912, end: 20140921
  14. FLOMOX//CEFCAPENE PIVOXIL HYDROCHLORIDE [Concomitant]
     Active Substance: CEFCAPENE PIVOXIL HYDROCHLORIDE HYDRATE
     Indication: CYSTITIS
     Dosage: 200 MG, UNK
     Route: 048
     Dates: start: 20140418, end: 20140427
  15. ALLEGRA [Concomitant]
     Active Substance: FEXOFENADINE HYDROCHLORIDE
     Indication: PRURITUS
     Dosage: 120 MG, UNK
     Route: 048
     Dates: start: 20141008
  16. LOXONIN [Concomitant]
     Active Substance: LOXOPROFEN SODIUM
     Dosage: 180 MG, UNK
     Route: 048
     Dates: start: 20141017, end: 20141026
  17. FLOMOX//CEFCAPENE PIVOXIL HYDROCHLORIDE [Concomitant]
     Active Substance: CEFCAPENE PIVOXIL HYDROCHLORIDE HYDRATE
     Dosage: 300 MG, UNK
     Route: 048
     Dates: start: 20141017, end: 20141026
  18. NEXIUM [Concomitant]
     Active Substance: ESOMEPRAZOLE MAGNESIUM
     Indication: PROPHYLAXIS
     Route: 048
  19. AZILVA [Concomitant]
     Active Substance: AZILSARTAN KAMEDOXOMIL
     Indication: HYPERTENSION
     Dosage: 20 MG, UNK
     Route: 048
     Dates: start: 20131221
  20. BREDININ [Concomitant]
     Active Substance: MIZORIBINE
     Indication: RENAL IMPAIRMENT
     Route: 048
     Dates: start: 20140107
  21. PROMAC//POLAPREZINC [Concomitant]
     Indication: PROPHYLAXIS
     Route: 048
     Dates: start: 20141017
  22. GLUFAST [Concomitant]
     Active Substance: MITIGLINIDE
     Indication: TYPE 2 DIABETES MELLITUS
     Dosage: 20 MG, UNK
     Route: 048
     Dates: start: 20131119, end: 20131124
  23. LOXONIN [Concomitant]
     Active Substance: LOXOPROFEN SODIUM
     Dosage: 180 MG, UNK
     Route: 048
     Dates: start: 20140912, end: 20140921
  24. LIPITOR [Concomitant]
     Active Substance: ATORVASTATIN CALCIUM
     Indication: DYSLIPIDAEMIA
     Route: 048
  25. LOXONIN [Concomitant]
     Active Substance: LOXOPROFEN SODIUM
     Indication: TYPE 2 DIABETES MELLITUS
     Dosage: UNK
     Route: 065
     Dates: start: 20140418
  26. MUCOSTA [Concomitant]
     Active Substance: REBAMIPIDE
     Indication: TYPE 2 DIABETES MELLITUS
     Dosage: 300 MG, UNK
     Route: 048
     Dates: start: 20140418, end: 20140427
  27. MUCOSTA [Concomitant]
     Active Substance: REBAMIPIDE
     Indication: PROPHYLAXIS
     Dosage: 300 MG, UNK
     Route: 048
     Dates: start: 20140509, end: 20140518
  28. MEDICON (DEXTROMETHORPHAN HYDROBROMIDE) [Concomitant]
     Active Substance: DEXTROMETHORPHAN HYDROBROMIDE
     Indication: TYPE 2 DIABETES MELLITUS
     Dosage: 45 MG, UNK
     Route: 048
     Dates: start: 20140912, end: 20140921
  29. LASIX [Concomitant]
     Active Substance: FUROSEMIDE
     Dosage: UNK
     Route: 065
     Dates: start: 20140808, end: 20140817
  30. LOXONIN [Concomitant]
     Active Substance: LOXOPROFEN SODIUM
     Dosage: 180 MG, UNK
     Route: 048
     Dates: start: 20140711, end: 20140720
  31. FLOMOX//CEFCAPENE PIVOXIL HYDROCHLORIDE [Concomitant]
     Active Substance: CEFCAPENE PIVOXIL HYDROCHLORIDE HYDRATE
     Dosage: 200 MG, UNK
     Route: 048
     Dates: start: 20140711, end: 20140720
  32. OZEX [Concomitant]
     Active Substance: TOSUFLOXACIN TOSYLATE
     Indication: TYPE 2 DIABETES MELLITUS
     Dosage: 300 MG, UNK
     Route: 048
     Dates: start: 20140711, end: 20140720
  33. ZETIA [Concomitant]
     Active Substance: EZETIMIBE
     Indication: DYSLIPIDAEMIA
     Dosage: UNK
     Route: 048
     Dates: end: 20131219
  34. PREDONINE [Concomitant]
     Active Substance: PREDNISOLONE\PREDNISOLONE ACETATE\PREDNISOLONE SODIUM SUCCINATE
     Indication: RENAL IMPAIRMENT
     Route: 065
  35. ALDACTONE A [Concomitant]
     Active Substance: SPIRONOLACTONE
     Indication: RENAL IMPAIRMENT
     Dosage: 25 MG, UNK
     Route: 048
     Dates: start: 20131112
  36. ALBUMIN (HUMAN). [Concomitant]
     Active Substance: ALBUMIN (HUMAN)
     Indication: RENAL IMPAIRMENT
     Dosage: 10 G, UNK
     Route: 065
     Dates: start: 20131030, end: 20131030
  37. NEORAL [Suspect]
     Active Substance: CYCLOSPORINE
     Indication: RENAL IMPAIRMENT
     Dosage: 150 MG, QD
     Route: 048
     Dates: start: 20131205, end: 20131213
  38. NOVORAPID [Concomitant]
     Active Substance: INSULIN ASPART
     Indication: TYPE 2 DIABETES MELLITUS
     Dosage: 80 IU, UNK
     Route: 065
     Dates: start: 20131125, end: 20140508
  39. MUCOSAL-L [Concomitant]
     Indication: TYPE 2 DIABETES MELLITUS
     Dosage: 45 MG, UNK
     Route: 048
     Dates: start: 20140912, end: 20140921
  40. ALFAROL [Concomitant]
     Active Substance: ALFACALCIDOL
     Indication: PROPHYLAXIS
     Route: 048
  41. WARFARIN POTASSIUM [Concomitant]
     Active Substance: WARFARIN POTASSIUM
     Indication: PROPHYLAXIS
     Route: 048
  42. BONALON [Concomitant]
     Active Substance: ALENDRONATE SODIUM
     Indication: PROPHYLAXIS
     Route: 048
     Dates: start: 20140613
  43. EQUA TAB [Suspect]
     Active Substance: VILDAGLIPTIN
     Indication: TYPE 2 DIABETES MELLITUS
     Dosage: 50 MG, QD
     Route: 048
     Dates: start: 20131031
  44. NOVORAPID [Concomitant]
     Active Substance: INSULIN ASPART
     Dosage: 68 IU, UNK
     Route: 065
     Dates: start: 20140509
  45. MUCOSTA [Concomitant]
     Active Substance: REBAMIPIDE
     Dosage: 300 MG, UNK
     Route: 048
     Dates: start: 20141017, end: 20141026
  46. OZEX [Concomitant]
     Active Substance: TOSUFLOXACIN TOSYLATE
     Indication: CYSTITIS
     Dosage: 300 MG, UNK
     Route: 048
     Dates: start: 20140912, end: 20140921
  47. SAMSCA [Concomitant]
     Active Substance: TOLVAPTAN
     Indication: RENAL IMPAIRMENT
     Route: 048
     Dates: start: 20131031, end: 20131115

REACTIONS (9)
  - Blood alkaline phosphatase increased [Unknown]
  - Blood pressure increased [Unknown]
  - Blood glucose increased [Unknown]
  - Nasopharyngitis [Recovering/Resolving]
  - Compression fracture [Recovering/Resolving]
  - Back pain [Not Recovered/Not Resolved]
  - Glycosylated haemoglobin increased [Unknown]
  - Infection [Unknown]
  - Heart rate increased [Unknown]

NARRATIVE: CASE EVENT DATE: 20131209
